FAERS Safety Report 6141581-X (Version None)
Quarter: 2009Q2

REPORT INFORMATION
  Report Type: 
  Country: None (occurrence: None)
  Receive Date: 20090402
  Receipt Date: 20090326
  Transmission Date: 20091009
  Serious: Yes (Life-Threatening)
  Sender: FDA-Public Use
  Company Number: A0776426A

PATIENT
  Age: 24 Year
  Sex: Female

DRUGS (2)
  1. ZYBAN [Suspect]
     Indication: DRUG USE FOR UNKNOWN INDICATION
     Dosage: 150MG TWICE PER DAY
     Route: 048
  2. ALESSE [Concomitant]
     Route: 065

REACTIONS (4)
  - ANGER [None]
  - CRYING [None]
  - NEGATIVE THOUGHTS [None]
  - SUICIDAL IDEATION [None]
